FAERS Safety Report 6210699-5 (Version None)
Quarter: 2009Q2

REPORT INFORMATION
  Report Type: 
  Country: None (occurrence: None)
  Receive Date: 20090528
  Receipt Date: 20090528
  Transmission Date: 20091009
  Serious: Yes (Other)
  Sender: FDA-Public Use
  Company Number: None

PATIENT
  Age: 30 Year
  Sex: Female
  Weight: 51.7101 kg

DRUGS (1)
  1. NUVARING [Suspect]
     Indication: CONTRACEPTION
     Dosage: DAILY VAG FOR A FEW MONTHS IN 2007

REACTIONS (3)
  - FEMALE SEXUAL DYSFUNCTION [None]
  - FUNGAL INFECTION [None]
  - LICHEN SCLEROSUS [None]
